FAERS Safety Report 21684640 (Version 2)
Quarter: 2022Q4

REPORT INFORMATION
  Report Type: Report from Study
  Country: DK (occurrence: DK)
  Receive Date: 20221205
  Receipt Date: 20221214
  Transmission Date: 20230113
  Serious: Yes (Hospitalization)
  Sender: FDA-Public Use
  Company Number: DK-KARYOPHARM-2022KPT001513

PATIENT
  Age: 82 Year
  Sex: Male

DRUGS (16)
  1. SELINEXOR [Suspect]
     Active Substance: SELINEXOR
     Indication: Plasma cell myeloma
     Dosage: 40 MG, WEEKLY ON DAYS 1,8, 15, AND 22
     Route: 048
     Dates: start: 20221013
  2. SELINEXOR [Suspect]
     Active Substance: SELINEXOR
     Dosage: 80 MG, WEEKLY
     Route: 048
     Dates: start: 20221118, end: 20221125
  3. SELINEXOR [Suspect]
     Active Substance: SELINEXOR
     Dosage: 80 MG, WEEKLY
     Route: 048
     Dates: start: 20221202
  4. DEXAMETHASONE [Suspect]
     Active Substance: DEXAMETHASONE
     Indication: Plasma cell myeloma
     Dosage: 20 MG, ON DAYS 1 AND 2, 8 AND 9, 15 AND 16 EVERY 28 DAYS
     Route: 048
     Dates: start: 20221013, end: 20221104
  5. DEXAMETHASONE [Suspect]
     Active Substance: DEXAMETHASONE
     Dosage: 20 MG, ON DAYS 1 AND 2, 8 AND 9, 15 AND 16 EVERY 28 DAYS
     Route: 048
     Dates: start: 20221118, end: 20221125
  6. DEXAMETHASONE [Suspect]
     Active Substance: DEXAMETHASONE
     Dosage: 20 MG, ON DAYS 1 AND 2, 8 AND 9, 15 AND 16 EVERY 28 DAYS
     Route: 048
     Dates: start: 20221202
  7. BORTEZOMIB [Suspect]
     Active Substance: BORTEZOMIB
     Indication: Plasma cell myeloma
     Dosage: 1.3 MG/M2, WEEKLY
     Route: 058
     Dates: start: 20221118, end: 20221125
  8. BORTEZOMIB [Suspect]
     Active Substance: BORTEZOMIB
     Dosage: 1.3 MG/M2, WEEKLY
     Route: 058
     Dates: start: 20221202
  9. ACYCLOVIR [Concomitant]
     Active Substance: ACYCLOVIR
     Indication: Prophylaxis
     Dosage: 400 MG, QD
     Route: 048
     Dates: start: 20221013
  10. UNIKALK SILVER [Concomitant]
     Indication: Osteoporosis prophylaxis
     Dosage: 1 TABLET, QD
     Route: 048
     Dates: start: 20221013
  11. GANGIDEN [Concomitant]
     Indication: Constipation
     Dosage: 1 POWDER FOR ORAL SOLUTION, PRN; MAX 3 TIMES PER DAY
     Route: 048
     Dates: start: 20220910
  12. FRAGMIN [Concomitant]
     Active Substance: DALTEPARIN SODIUM
     Indication: Thrombosis prophylaxis
     Dosage: 5000 IU, QD
     Dates: start: 20221013
  13. PANTOPRAZOLE [Concomitant]
     Active Substance: PANTOPRAZOLE
     Indication: Prophylaxis against gastrointestinal ulcer
     Dosage: 0.025 DOSAGE FORM, IN THE MORNING ON DAYS WHEN DEXAMETHASONE IS TAKEN
     Route: 048
     Dates: start: 20221013
  14. EMEND [Concomitant]
     Active Substance: APREPITANT
     Indication: Nausea
     Dosage: 125+80 MG, WEEKLY
     Route: 048
     Dates: start: 20221014, end: 20221111
  15. EMEND [Concomitant]
     Active Substance: APREPITANT
     Dosage: 125+80 MG, WEEKLY
     Route: 048
     Dates: start: 20221118, end: 20221212
  16. ONDANSETRON STADA [Concomitant]
     Indication: Nausea
     Dosage: 8 MG ON DAYS 1, 2, 8, 9, 15, 16, 22, AND 23
     Dates: start: 20221118

REACTIONS (1)
  - Bacterial infection [Recovered/Resolved]

NARRATIVE: CASE EVENT DATE: 20221124
